FAERS Safety Report 24616885 (Version 1)
Quarter: 2024Q4

REPORT INFORMATION
  Report Type: Spontaneous
  Country: US (occurrence: US)
  Receive Date: 20241114
  Receipt Date: 20241114
  Transmission Date: 20250115
  Serious: No
  Sender: OTSUKA
  Company Number: US-OTSUKA-2024_021667

PATIENT
  Age: 62 Year
  Sex: Female
  Weight: 90.72 kg

DRUGS (4)
  1. NUEDEXTA [Suspect]
     Active Substance: DEXTROMETHORPHAN HYDROBROMIDE\QUINIDINE SULFATE
     Indication: Depression
     Dosage: 1 DF (20-10MG), QD (FIRST WEEK)
     Route: 065
     Dates: start: 202407
  2. NUEDEXTA [Suspect]
     Active Substance: DEXTROMETHORPHAN HYDROBROMIDE\QUINIDINE SULFATE
     Indication: Anxiety
     Dosage: UNK (TWO CAPSULES) (SECOND WEEK)
     Route: 065
  3. NUEDEXTA [Suspect]
     Active Substance: DEXTROMETHORPHAN HYDROBROMIDE\QUINIDINE SULFATE
     Indication: Nerve injury
     Dosage: 1 DF (20-10MG), QD
     Route: 065
  4. HUMIRA [Concomitant]
     Active Substance: ADALIMUMAB
     Indication: Crohn^s disease
     Dosage: UNK (SHOT)
     Route: 065

REACTIONS (4)
  - Therapy interrupted [Unknown]
  - Off label use [Unknown]
  - Inability to afford medication [Unknown]
  - Intentional product use issue [Unknown]

NARRATIVE: CASE EVENT DATE: 20240701
